FAERS Safety Report 15849275 (Version 2)
Quarter: 2019Q2

REPORT INFORMATION
  Report Type: Spontaneous
  Country: US (occurrence: US)
  Receive Date: 20190121
  Receipt Date: 20190521
  Transmission Date: 20190711
  Serious: Yes (Hospitalization, Other)
  Sender: FDA-Public Use
  Company Number: US-SAKK-2019SA012665AA

PATIENT
  Age: 33 Year
  Sex: Female
  Weight: 117.01 kg

DRUGS (3)
  1. LEMTRADA [Suspect]
     Active Substance: ALEMTUZUMAB
     Indication: MULTIPLE SCLEROSIS
     Dosage: 12 MG, QD
     Route: 041
     Dates: start: 20190107, end: 20190110
  2. METHYLPREDNISOLONE. [Concomitant]
     Active Substance: METHYLPREDNISOLONE
     Dosage: 250 MG, 1X
     Route: 042
     Dates: start: 20190101, end: 20190111
  3. DIPHENHYDRAMINE. [Concomitant]
     Active Substance: DIPHENHYDRAMINE
     Dosage: 50 MG, QD
     Route: 042
     Dates: start: 20190101, end: 20190101

REACTIONS (7)
  - Pulmonary haemorrhage [Unknown]
  - Protein urine present [Unknown]
  - Pulmonary mass [Unknown]
  - Pneumonitis [Unknown]
  - Lung infiltration [Unknown]
  - Haemoptysis [Unknown]
  - Cough [Unknown]

NARRATIVE: CASE EVENT DATE: 20190110
